FAERS Safety Report 9202002 (Version 2)
Quarter: 2013Q2

REPORT INFORMATION
  Report Type: Spontaneous
  Country: US (occurrence: US)
  Receive Date: 20130401
  Receipt Date: 20130613
  Transmission Date: 20140414
  Serious: Yes (Life-Threatening, Other)
  Sender: FDA-Public Use
  Company Number: US-CELGENEUS-163-21880-13034245

PATIENT
  Age: 73 Year
  Sex: Male

DRUGS (8)
  1. REVLIMID [Suspect]
     Indication: PLASMA CELL MYELOMA
     Dosage: 20 MILLIGRAM
     Route: 048
     Dates: start: 201011
  2. REVLIMID [Suspect]
     Dosage: 15MG-10MG
     Route: 048
     Dates: start: 201012
  3. REVLIMID [Suspect]
     Dosage: 5MG-10MG
     Route: 048
     Dates: start: 201108
  4. REVLIMID [Suspect]
     Dosage: 7.5MG-5MG
     Route: 048
     Dates: start: 201207
  5. REVLIMID [Suspect]
     Dosage: 5 MILLIGRAM
     Route: 048
     Dates: start: 201212, end: 2013
  6. AZOR [Concomitant]
     Indication: BLOOD PRESSURE
     Dosage: 10MG-40MG
     Route: 048
  7. LOVENOX [Concomitant]
     Indication: DEEP VEIN THROMBOSIS
     Dosage: 150 MILLIGRAM
     Route: 058
  8. ATENOLOL [Concomitant]
     Indication: BLOOD PRESSURE
     Dosage: 25 MILLIGRAM
     Route: 048

REACTIONS (1)
  - Small cell lung cancer [Unknown]
